FAERS Safety Report 7479143-4 (Version None)
Quarter: 2011Q2

REPORT INFORMATION
  Report Type: 
  Country: None (occurrence: None)
  Receive Date: 20110511
  Receipt Date: 20110511
  Transmission Date: 20111010
  Serious: Yes (Other)
  Sender: FDA-Public Use
  Company Number: None

PATIENT
  Sex: Female
  Weight: 56.6996 kg

DRUGS (5)
  1. ACIPHEX [Concomitant]
  2. ATENOLOL [Concomitant]
  3. SYNTHROID [Concomitant]
  4. VITAMIN D [Concomitant]
  5. FOSAMAX [Suspect]
     Indication: OSTEOPOROSIS
     Dosage: 70 MG 1 A WK.
     Dates: start: 20110404

REACTIONS (14)
  - DIZZINESS [None]
  - RASH [None]
  - DIARRHOEA [None]
  - INSOMNIA [None]
  - DYSPNOEA [None]
  - DRUG PRESCRIBING ERROR [None]
  - BONE DISORDER [None]
  - PAIN [None]
  - SENSORY LOSS [None]
  - DYSURIA [None]
  - CONSTIPATION [None]
  - FALL [None]
  - GASTRIC HAEMORRHAGE [None]
  - CHEST PAIN [None]
